FAERS Safety Report 7702718-1 (Version None)
Quarter: 2011Q3

REPORT INFORMATION
  Report Type: 
  Country: None (occurrence: None)
  Receive Date: 20110823
  Receipt Date: 20110221
  Transmission Date: 20111222
  Serious: No
  Sender: FDA-Public Use
  Company Number: US-BAYER-2011-017104

PATIENT
  Sex: Female

DRUGS (2)
  1. MIRENA [Suspect]
     Indication: MENOMETRORRHAGIA
  2. MIRENA [Suspect]
     Indication: DYSFUNCTIONAL UTERINE BLEEDING
     Dosage: 20 MCG/24HR, CONT
     Route: 015

REACTIONS (1)
  - MIGRAINE [None]
